FAERS Safety Report 9008993 (Version 1)
Quarter: 2013Q1

REPORT INFORMATION
  Report Type: Spontaneous
  Country: US (occurrence: US)
  Receive Date: 20130111
  Receipt Date: 20130111
  Transmission Date: 20140127
  Serious: No
  Sender: FDA-Public Use
  Company Number: US-PFIZER INC-2013010879

PATIENT
  Age: 74 Year
  Sex: Female

DRUGS (1)
  1. PREMARIN [Suspect]
     Dosage: UNK, 2X/WEEK
     Route: 067
     Dates: start: 20081021

REACTIONS (2)
  - Vaginal inflammation [Unknown]
  - Vulvovaginal burning sensation [Unknown]
